FAERS Safety Report 5201564-0 (Version None)
Quarter: 2006Q4

REPORT INFORMATION
  Report Type: 
  Country: None (occurrence: None)
  Receive Date: 20061006
  Receipt Date: 20051201
  Transmission Date: 20070319
  Serious: Yes (Other)
  Sender: FDA-Public Use
  Company Number: PHEH2005US10335

PATIENT
  Age: 52 Year
  Sex: Female

DRUGS (8)
  1. ESTALIS COMBIPATCH(ESTRADIOL, NORETHISTERONE ACETATE) TRANS-THERAPEUTI [Suspect]
     Indication: HORMONE REPLACEMENT THERAPY
     Dosage: TRANSDERMAL
     Route: 062
     Dates: start: 19990101
  2. PREMPLUS (ESTROGENS CONJUGATED, MEDROGESTERONE) [Suspect]
     Indication: DRUG USE FOR UNKNOWN INDICATION
  3. PREMARIN [Suspect]
     Indication: DRUG USE FOR UNKNOWN INDICATION
     Dates: start: 19890101, end: 19990101
  4. PREMPHASE (PREMARIN;CYCRIN 14/14) [Suspect]
     Indication: DRUG USE FOR UNKNOWN INDICATION
  5. MEDROXYPROGESTERONE [Suspect]
     Indication: DRUG USE FOR UNKNOWN INDICATION
  6. PROVERA [Suspect]
     Indication: DRUG USE FOR UNKNOWN INDICATION
     Dates: start: 19890101, end: 19990101
  7. PREMPRO [Suspect]
     Indication: DRUG USE FOR UNKNOWN INDICATION
     Dates: start: 20000101, end: 20020101
  8. SYNTHROID [Concomitant]

REACTIONS (2)
  - BREAST CANCER [None]
  - BREAST CYST [None]
